FAERS Safety Report 6886781-6 (Version None)
Quarter: 2010Q3

REPORT INFORMATION
  Report Type: 
  Country: None (occurrence: None)
  Receive Date: 20100730
  Receipt Date: 20100720
  Transmission Date: 20110219
  Serious: Yes (Other)
  Sender: FDA-Public Use
  Company Number: US-PFIZER INC-2010069525

PATIENT
  Sex: Male
  Weight: 86.2 kg

DRUGS (5)
  1. LIPITOR [Suspect]
     Indication: CARDIAC DISORDER
     Dosage: 40 MG, 1X/DAY
     Route: 048
     Dates: start: 20050401
  2. LIPITOR [Suspect]
     Indication: BLOOD CHOLESTEROL INCREASED
  3. ACETYLSALICYLIC ACID [Concomitant]
     Indication: CARDIAC DISORDER
     Dosage: 81 MG, 2X/DAY
     Route: 048
  4. BISOPROLOL [Concomitant]
     Indication: CARDIAC DISORDER
     Dosage: 2.5 MG, 1X/DAY
     Route: 048
  5. FENOFIBRATE [Concomitant]
     Dosage: 135MG, UNK

REACTIONS (5)
  - ARTERIOSCLEROSIS CORONARY ARTERY [None]
  - DRUG DOSE OMISSION [None]
  - MUSCLE SPASMS [None]
  - MYALGIA [None]
  - WEIGHT INCREASED [None]
